FAERS Safety Report 17122204 (Version 3)
Quarter: 2020Q1

REPORT INFORMATION
  Report Type: Spontaneous
  Country: US (occurrence: US)
  Receive Date: 20191206
  Receipt Date: 20200206
  Transmission Date: 20200409
  Serious: No
  Sender: FDA-Public Use
  Company Number: US-PFIZER INC-2018516874

PATIENT
  Age: 31 Year
  Sex: Female
  Weight: 79.38 kg

DRUGS (3)
  1. DILANTIN [Suspect]
     Active Substance: PHENYTOIN
     Dosage: 300 MG, UNK
  2. DILANTIN [Suspect]
     Active Substance: PHENYTOIN
     Dosage: 500 MG, ALTERNATE DAY(ALTERNATING DAILY DOSE OF 4 CAPSULES DAILY, THEN 5 CAPSULES DAILY)
     Route: 048
     Dates: start: 1991
  3. DILANTIN [Suspect]
     Active Substance: PHENYTOIN
     Indication: SEIZURE
     Dosage: 400 MG, ALTERNATE DAY(ALTERNATING DAILY DOSE OF 4 CAPSULES DAILY, THEN 5 CAPSULES DAILY)
     Route: 048
     Dates: start: 1991

REACTIONS (4)
  - Electroencephalogram abnormal [Unknown]
  - Intentional product use issue [Unknown]
  - Off label use [Unknown]
  - Visual impairment [Unknown]

NARRATIVE: CASE EVENT DATE: 1991
